FAERS Safety Report 8396342-8 (Version None)
Quarter: 2012Q2

REPORT INFORMATION
  Report Type: 
  Country: None (occurrence: None)
  Receive Date: 20120530
  Receipt Date: 20120517
  Transmission Date: 20120825
  Serious: Yes (Other)
  Sender: FDA-Public Use
  Company Number: US-BAYER-2012-049753

PATIENT

DRUGS (2)
  1. ASPIRIN [Suspect]
     Dosage: 1 DF, QD
     Route: 048
  2. ASPIRIN [Suspect]
     Indication: ISCHAEMIC HEART DISEASE PROPHYLAXIS
     Route: 048

REACTIONS (1)
  - MYOCARDIAL INFARCTION [None]
